FAERS Safety Report 7691406-6 (Version None)
Quarter: 2011Q3

REPORT INFORMATION
  Report Type: 
  Country: None (occurrence: None)
  Receive Date: 20110818
  Receipt Date: 20110808
  Transmission Date: 20111222
  Serious: Yes (Other)
  Sender: FDA-Public Use
  Company Number: PHFR2011GB02650

PATIENT
  Sex: Male

DRUGS (8)
  1. CLOZAPINE [Suspect]
     Indication: SCHIZOPHRENIA, PARANOID TYPE
     Dosage: 175 MG/DAY
     Route: 048
     Dates: start: 20030105
  2. SIMVASTATIN [Concomitant]
     Indication: HYPERCHOLESTEROLAEMIA
     Dosage: 40 MG, DAILY
     Route: 048
     Dates: start: 20091127
  3. IRBESARTAN [Concomitant]
     Indication: DIABETES MELLITUS
     Dosage: 150 MG, DAILY
     Route: 048
     Dates: start: 20100428
  4. METFORMIN HYDROCHLORIDE [Suspect]
     Dosage: UNK UKN, UNK
     Route: 048
     Dates: start: 20090120, end: 20110628
  5. SITAGLIPTIN [Concomitant]
     Indication: DIABETES MELLITUS
     Dosage: UNK UKN, UNK
     Route: 048
     Dates: start: 20100628
  6. IRBESARTAN [Concomitant]
     Indication: HYPERTENSION
  7. METFORMIN [Concomitant]
     Indication: DIABETES MELLITUS
     Dosage: UNK UKN, UNK
     Route: 048
     Dates: start: 20100628
  8. QVAR 40 [Concomitant]
     Indication: ASTHMA
     Dosage: 100 UG, BID
     Dates: start: 20100312

REACTIONS (3)
  - VOMITING [None]
  - NAUSEA [None]
  - TYPE 2 DIABETES MELLITUS [None]
